FAERS Safety Report 17687935 (Version 1)
Quarter: 2020Q2

REPORT INFORMATION
  Report Type: Report from Study
  Country: CA (occurrence: CA)
  Receive Date: 20200421
  Receipt Date: 20200421
  Transmission Date: 20200714
  Serious: Yes (Other)
  Sender: FDA-Public Use
  Company Number: NVSC2020CA106230

PATIENT
  Age: 83 Year
  Sex: Male

DRUGS (3)
  1. OTEZLA [Concomitant]
     Active Substance: APREMILAST
     Indication: PRODUCT USED FOR UNKNOWN INDICATION
     Route: 065
  2. METHOTREXATE. [Concomitant]
     Active Substance: METHOTREXATE
     Indication: PRODUCT USED FOR UNKNOWN INDICATION
     Route: 065
  3. COSENTYX [Suspect]
     Active Substance: SECUKINUMAB
     Indication: PSORIASIS
     Dosage: 300 MG, QW
     Route: 058
     Dates: start: 20200123

REACTIONS (4)
  - Pruritus [Recovering/Resolving]
  - Sexual dysfunction [Recovering/Resolving]
  - Skin lesion [Recovering/Resolving]
  - Pain of skin [Recovering/Resolving]

NARRATIVE: CASE EVENT DATE: 20200416
